FAERS Safety Report 23643523 (Version 1)
Quarter: 2024Q1

REPORT INFORMATION
  Report Type: Spontaneous
  Country: JP (occurrence: None)
  Receive Date: 20240318
  Receipt Date: 20240318
  Transmission Date: 20240410
  Serious: Yes (Life-Threatening, Hospitalization, Other)
  Sender: FDA-Public Use
  Company Number: 2024A064904

PATIENT
  Age: 60 Year
  Sex: Female

DRUGS (3)
  1. QUETIAPINE [Interacting]
     Active Substance: QUETIAPINE
     Indication: Insomnia
     Dosage: UNK UNK, UNKNOWN FREQ.
  2. CAFFEINE [Interacting]
     Active Substance: CAFFEINE
     Indication: Product used for unknown indication
     Dosage: ESTIMATED TO BE 200-400 MG/DOSE, UNKNOWN FREQ.
  3. PEROSPIRONE HYDROCHLORIDE [Interacting]
     Active Substance: PEROSPIRONE HYDROCHLORIDE
     Indication: Insomnia
     Dosage: UNK UNK, UNKNOWN FREQ.

REACTIONS (3)
  - Chemical poisoning [Recovering/Resolving]
  - Drug interaction [Unknown]
  - Off label use [Unknown]
